FAERS Safety Report 4709895-5 (Version None)
Quarter: 2005Q3

REPORT INFORMATION
  Report Type: 
  Country: None (occurrence: None)
  Receive Date: 20050708
  Receipt Date: 20050627
  Transmission Date: 20060218
  Serious: Yes (Hospitalization)
  Sender: FDA-Public Use
  Company Number: CA-BRISTOL-MYERS SQUIBB COMPANY-13020185

PATIENT
  Age: 64 Year
  Sex: Male

DRUGS (1)
  1. CEFZIL [Suspect]
     Indication: PENILE INFECTION
     Dosage: 13-MAY-05 2 DOSES OF CEFPROZIL THEN DISCONTINUED, RESTARTED 13-JUN-05, 1 DOSE OF CEFPROZIL + STOPPED
     Route: 048
     Dates: start: 20050512, end: 20050613

REACTIONS (5)
  - DEHYDRATION [None]
  - DIARRHOEA [None]
  - RENAL FAILURE ACUTE [None]
  - RENAL IMPAIRMENT [None]
  - VOMITING [None]
